FAERS Safety Report 4765662-8 (Version None)
Quarter: 2005Q3

REPORT INFORMATION
  Report Type: 
  Country: None (occurrence: None)
  Receive Date: 20050906
  Receipt Date: 20050426
  Transmission Date: 20060218
  Serious: Yes (Hospitalization, Other)
  Sender: FDA-Public Use
  Company Number: 2004034450

PATIENT
  Age: 61 Year
  Sex: Female

DRUGS (6)
  1. LIPITOR [Suspect]
     Indication: DYSLIPIDAEMIA
     Dosage: 10 MG (10 MG, 1 IN 1 D); ORAL
     Route: 048
     Dates: start: 19980501
  2. VASOPRIL/BRA/(ENALAPRIL MALEATE) [Concomitant]
  3. ATENOLOL [Concomitant]
  4. SUSTRATE (PROPATYLNITRATE) [Concomitant]
  5. ACETYLSALICYLIC ACID SRT [Concomitant]
  6. ESTRADIOL [Concomitant]

REACTIONS (13)
  - ANAL NEOPLASM [None]
  - BENIGN RENAL NEOPLASM [None]
  - BLOOD URINE PRESENT [None]
  - BONE PAIN [None]
  - CARDIAC DISORDER [None]
  - DIVERTICULUM [None]
  - DYSENTERY [None]
  - GASTROINTESTINAL NEOPLASM [None]
  - HAEMORRHAGE [None]
  - HYPERTENSION [None]
  - INTESTINAL MASS [None]
  - LABYRINTHITIS [None]
  - MEMORY IMPAIRMENT [None]
